FAERS Safety Report 7375811 (Version 6)
Quarter: 2013Q4

REPORT INFORMATION
  Report Type: Spontaneous
  Country: US (occurrence: US)
  Receive Date: 20100504
  Receipt Date: 20131227
  Transmission Date: 20140711
  Serious: Yes (Hospitalization, Other)
  Sender: FDA-Public Use
  Company Number: US-BAYER-201020492NA

PATIENT
  Age: 26 Year
  Sex: Female
  Weight: 65.76 kg

DRUGS (17)
  1. YASMIN [Suspect]
     Route: 048
     Dates: start: 200609, end: 200909
  2. OCELLA [Suspect]
     Indication: CONTRACEPTION
     Dates: start: 200609, end: 200909
  3. ORTHO EVRA [Concomitant]
     Route: 062
     Dates: start: 2005
  4. PROVENTIL [Concomitant]
  5. PRO-AIR [Concomitant]
     Indication: ASTHMA
     Dates: start: 1994
  6. ADVAIR [Concomitant]
     Indication: ASTHMA
     Dates: start: 1994
  7. PRENATAL VITAMINS [Concomitant]
     Dosage: OVER THE COUNTER. DAILY
  8. TEGRETOL [Concomitant]
  9. DILANTIN [Concomitant]
     Dates: start: 20070506
  10. ZOMIG [Concomitant]
     Dates: start: 200807
  11. MOTRIN [Concomitant]
  12. ALEVE [Concomitant]
     Dates: start: 2000
  13. PROPYLTHIOURACIL [Concomitant]
     Dates: start: 2005, end: 2007
  14. TYLENOL [PARACETAMOL] [Concomitant]
  15. ALBUTEROL [Concomitant]
  16. FOLIC ACID [Concomitant]
     Dosage: UNK;DAILY
     Dates: start: 20080207
  17. PREVACID [Concomitant]

REACTIONS (4)
  - Cholecystitis chronic [None]
  - Cholelithiasis [Unknown]
  - Abdominal pain [Unknown]
  - Chest pain [Unknown]
